FAERS Safety Report 8708303 (Version 6)
Quarter: 2014Q3

REPORT INFORMATION
  Report Type: Spontaneous
  Country: US (occurrence: US)
  Receive Date: 20120806
  Receipt Date: 20140818
  Transmission Date: 20150326
  Serious: Yes (Hospitalization, Other)
  Sender: FDA-Public Use
  Company Number: US-009507513-1208USA000228

PATIENT
  Sex: Female
  Weight: 49.89 kg

DRUGS (2)
  1. NUVARING [Suspect]
     Active Substance: ETHINYL ESTRADIOL\ETONOGESTREL
     Indication: CONTRACEPTION
     Dosage: 3 WEEKS IN 1 WEEK OUT
     Route: 067
     Dates: start: 20080925, end: 20110128
  2. NUVARING [Suspect]
     Active Substance: ETHINYL ESTRADIOL\ETONOGESTREL
     Indication: MENSTRUATION IRREGULAR

REACTIONS (22)
  - Depression [Unknown]
  - Pharyngitis [Unknown]
  - Sinusitis [Unknown]
  - Arthropod bite [Unknown]
  - Urinary tract infection [Recovered/Resolved]
  - Pulmonary infarction [Unknown]
  - Pulmonary embolism [Recovering/Resolving]
  - Anaemia [Unknown]
  - Chest pain [Unknown]
  - Scoliosis [Unknown]
  - Maternal exposure before pregnancy [Unknown]
  - Nausea [Unknown]
  - Deep vein thrombosis [Unknown]
  - Adverse drug reaction [Unknown]
  - Cardiac murmur [Unknown]
  - Coagulopathy [Unknown]
  - Leukocytosis [Unknown]
  - Vomiting [Unknown]
  - Protein S deficiency [Unknown]
  - Breast tenderness [Unknown]
  - Angina pectoris [Unknown]
  - Abdominal pain [Unknown]

NARRATIVE: CASE EVENT DATE: 20081211
